FAERS Safety Report 7980150-3 (Version None)
Quarter: 2011Q4

REPORT INFORMATION
  Report Type: 
  Country: None (occurrence: None)
  Receive Date: 20111214
  Receipt Date: 20111204
  Transmission Date: 20120403
  Serious: Yes (Other)
  Sender: FDA-Public Use
  Company Number: JP-ELI_LILLY_AND_COMPANY-JP201110000426

PATIENT
  Age: 72 Year
  Sex: Female

DRUGS (2)
  1. FORTEO [Suspect]
     Dosage: UNK
     Route: 058
     Dates: start: 20110929
  2. CORTICOSTEROIDS [Concomitant]
     Indication: POLYMYALGIA RHEUMATICA
     Route: 048

REACTIONS (12)
  - MUSCULOSKELETAL STIFFNESS [None]
  - NAUSEA [None]
  - HYPOAESTHESIA [None]
  - ANKLE FRACTURE [None]
  - PALPITATIONS [None]
  - ERYTHEMA [None]
  - FEELING ABNORMAL [None]
  - HEADACHE [None]
  - INJECTION SITE ERYTHEMA [None]
  - PYREXIA [None]
  - PURPURA [None]
  - MUSCULOSKELETAL CHEST PAIN [None]
